FAERS Safety Report 19430080 (Version 1)
Quarter: 2021Q2

REPORT INFORMATION
  Report Type: Spontaneous
  Country: CA (occurrence: CA)
  Receive Date: 20210617
  Receipt Date: 20210617
  Transmission Date: 20210717
  Serious: Yes (Other)
  Sender: FDA-Public Use
  Company Number: CA-MYLANLABS-2021M1034216

PATIENT
  Age: 77 Year
  Sex: Male

DRUGS (11)
  1. ELIQUIS [Concomitant]
     Active Substance: APIXABAN
     Dosage: UNK
  2. SPIRIVA [Concomitant]
     Active Substance: TIOTROPIUM BROMIDE MONOHYDRATE
     Dosage: UNK
  3. SYMBICORT [Concomitant]
     Active Substance: BUDESONIDE\FORMOTEROL FUMARATE DIHYDRATE
     Dosage: UNK
     Route: 065
  4. FUROSEMIDE. [Concomitant]
     Active Substance: FUROSEMIDE
     Dosage: UNK
  5. ROSUVASTATIN. [Concomitant]
     Active Substance: ROSUVASTATIN
     Dosage: UNK
     Route: 058
  6. GABAPENTIN. [Concomitant]
     Active Substance: GABAPENTIN
     Dosage: UNK
  7. SYNTHROID [Concomitant]
     Active Substance: LEVOTHYROXINE SODIUM
     Dosage: UNK
  8. LAMOTRIGINE. [Suspect]
     Active Substance: LAMOTRIGINE
     Indication: EPILEPSY
     Dosage: 100 MILLIGRAM, BID
     Route: 048
  9. BISOPROLOL [Concomitant]
     Active Substance: BISOPROLOL
     Dosage: UNK
  10. TAMSULOSIN [Concomitant]
     Active Substance: TAMSULOSIN
     Dosage: UNK
  11. FINASTERIDE. [Concomitant]
     Active Substance: FINASTERIDE
     Dosage: UNK

REACTIONS (7)
  - Peripheral coldness [Recovered/Resolved]
  - Discomfort [Recovered/Resolved]
  - Asthenia [Recovered/Resolved]
  - Rash macular [Recovered/Resolved]
  - Skin disorder [Recovered/Resolved]
  - Swelling [Recovered/Resolved]
  - Skin exfoliation [Recovered/Resolved]
